FAERS Safety Report 18246087 (Version 1)
Quarter: 2020Q3

REPORT INFORMATION
  Report Type: Report from Study
  Country: NL (occurrence: NL)
  Receive Date: 20200909
  Receipt Date: 20200909
  Transmission Date: 20201103
  Serious: Yes (Hospitalization)
  Sender: FDA-Public Use
  Company Number: NVSC2020NL239119

PATIENT
  Age: 47 Year
  Sex: Male

DRUGS (1)
  1. LESCOL [Suspect]
     Active Substance: FLUVASTATIN SODIUM
     Indication: TYPE IIA HYPERLIPIDAEMIA
     Dosage: UNK
     Route: 065

REACTIONS (3)
  - Drug intolerance [Unknown]
  - Low density lipoprotein abnormal [Unknown]
  - Product dose omission issue [Unknown]
